FAERS Safety Report 11433516 (Version 1)
Quarter: 2015Q3

REPORT INFORMATION
  Report Type: Spontaneous
  Country: US (occurrence: US)
  Receive Date: 20150831
  Receipt Date: 20150831
  Transmission Date: 20151125
  Serious: No
  Sender: FDA-Public Use
  Company Number: US-009507513-1508USA007453

PATIENT
  Sex: Male

DRUGS (2)
  1. VENTOLIN [Concomitant]
     Active Substance: ALBUTEROL SULFATE
  2. ASMANEX [Suspect]
     Active Substance: MOMETASONE FUROATE
     Indication: BRONCHOSPASM

REACTIONS (4)
  - Drug dose omission [Unknown]
  - No adverse event [Unknown]
  - Drug prescribing error [Unknown]
  - Product quality issue [Unknown]
